FAERS Safety Report 23609037 (Version 1)
Quarter: 2024Q1

REPORT INFORMATION
  Report Type: Spontaneous
  Country: JP (occurrence: None)
  Receive Date: 20240308
  Receipt Date: 20240308
  Transmission Date: 20240410
  Serious: Yes (Other)
  Sender: FDA-Public Use
  Company Number: JP-MLMSERVICE-20240228-4855351-1

PATIENT
  Age: 86 Year
  Sex: Female
  Weight: 36 kg

DRUGS (3)
  1. PREGABALIN [Suspect]
     Active Substance: PREGABALIN
     Indication: Osteonecrosis of jaw
  2. TRAMADOL [Suspect]
     Active Substance: TRAMADOL\TRAMADOL HYDROCHLORIDE
     Indication: Pain
     Dosage: GRADUALLY INCREASED TO 75 MG DAILY
  3. ACETAMINOPHEN [Suspect]
     Active Substance: ACETAMINOPHEN
     Indication: Pain
     Dosage: GRADUALLY INCREASED TO 2650 MG DAILY

REACTIONS (1)
  - Gait disturbance [Unknown]
